FAERS Safety Report 7237661-8 (Version None)
Quarter: 2011Q1

REPORT INFORMATION
  Report Type: 
  Country: None (occurrence: None)
  Receive Date: 20110113
  Receipt Date: 20110104
  Transmission Date: 20110831
  Serious: Yes (Hospitalization)
  Sender: FDA-Public Use
  Company Number: TAJPN-10-0691

PATIENT
  Age: 56 Year
  Sex: Female
  Weight: 70 kg

DRUGS (9)
  1. FUDOSTEINE (FURDOSTEINE) [Concomitant]
  2. METOCLOPRAMIDE [Concomitant]
  3. EMEND [Concomitant]
  4. LOXOPROFEN (LOXOPROFEN) [Concomitant]
  5. TEPRENONE (TEPRENONE) [Concomitant]
  6. MS CONTIN [Concomitant]
  7. FUROSEMIDE [Concomitant]
  8. ABRAXANE [Suspect]
     Indication: BREAST CANCER METASTATIC
     Dosage: 390 MG
     Dates: start: 20101029, end: 20101029
  9. RABEPRAZOLE SODIUM [Concomitant]

REACTIONS (5)
  - NEUTROPHIL COUNT DECREASED [None]
  - WHITE BLOOD CELL COUNT DECREASED [None]
  - PYREXIA [None]
  - C-REACTIVE PROTEIN INCREASED [None]
  - PLATELET COUNT DECREASED [None]
